FAERS Safety Report 23978062 (Version 2)
Quarter: 2024Q3

REPORT INFORMATION
  Report Type: Report from Study
  Country: KR (occurrence: KR)
  Receive Date: 20240614
  Receipt Date: 20240725
  Transmission Date: 20241017
  Serious: Yes (Death)
  Sender: ALNYLAM PHARMACEUTICALS
  Company Number: KR-ALNYLAM PHARMACEUTICALS, INC.-ALN-2024-003336

PATIENT

DRUGS (16)
  1. ONPATTRO [Suspect]
     Active Substance: PATISIRAN SODIUM
     Indication: Amyloidosis
     Dosage: 11.1 MILLIGRAM, Q3W
     Route: 042
     Dates: start: 20160913, end: 20160913
  2. ONPATTRO [Suspect]
     Active Substance: PATISIRAN SODIUM
     Dosage: UNK
     Route: 065
     Dates: start: 20230831, end: 20230831
  3. VITAMIN A [Concomitant]
     Active Substance: VITAMIN A
     Indication: Nutritional supplementation
     Dosage: 1 DOSAGE FORM, QD
     Route: 048
     Dates: start: 20150225
  4. PREGABALIN [Concomitant]
     Active Substance: PREGABALIN
     Indication: Hypoaesthesia
     Dosage: 75 MILLIGRAM, BID
     Route: 048
     Dates: start: 20140918
  5. ESCITALOPRAM [Concomitant]
     Active Substance: ESCITALOPRAM OXALATE
     Indication: Depression
     Dosage: 10 MILLIGRAM, QD
     Route: 048
     Dates: start: 20140916
  6. SODIUM HYALURONATE [Concomitant]
     Active Substance: HYALURONATE SODIUM
     Indication: Dry eye
     Dosage: 1 DROP, PRN
     Route: 047
     Dates: start: 20141013
  7. ZOLEDRONIC ACID [Concomitant]
     Active Substance: ZOLEDRONIC ACID
     Indication: Osteoporosis prophylaxis
     Dosage: 100 MILLIGRAM, EVERY YEAR
     Route: 042
     Dates: start: 20161227
  8. IRON POLYMALTOSE [Concomitant]
     Active Substance: IRON POLYMALTOSE
     Indication: Anaemia
     Dosage: 500 MILLIGRAM, PRN
     Route: 042
     Dates: start: 20170816
  9. URSODIOL [Concomitant]
     Active Substance: URSODIOL
     Indication: Hepatic enzyme increased
     Dosage: 200 MILLIGRAM, BID
     Route: 048
     Dates: start: 20190530
  10. ACTINAMIDE [Concomitant]
     Indication: Nutritional supplementation
     Dosage: 1 MILLIGRAM, PRN
     Route: 030
     Dates: start: 20200206
  11. MONUROL [Concomitant]
     Active Substance: FOSFOMYCIN TROMETHAMINE
     Indication: Urinary tract infection
     Dosage: 8 GRAM, PRN
     Route: 048
     Dates: start: 20200409
  12. MIDODRINE [Concomitant]
     Active Substance: MIDODRINE
     Indication: Orthostatic hypotension
     Dosage: 2.5 MILLIGRAM, TID
     Route: 048
     Dates: start: 20160128
  13. VITAMIN D3 [Concomitant]
     Active Substance: CHOLECALCIFEROL
     Indication: Nutritional supplementation
     Dosage: 1A, PRN
     Route: 030
     Dates: start: 20201126
  14. FLUDROCORTISONE [Concomitant]
     Active Substance: FLUDROCORTISONE
     Indication: Orthostatic hypotension
     Dosage: 0.05 MILLIGRAM, QD
     Route: 048
     Dates: start: 20201126
  15. RIFAXIMIN [Concomitant]
     Active Substance: RIFAXIMIN
     Indication: Diarrhoea
     Dosage: 200 MILLIGRAM, TID
     Route: 048
     Dates: start: 20210603
  16. RAMOSETRON HYDROCHLORIDE [Concomitant]
     Active Substance: RAMOSETRON HYDROCHLORIDE
     Indication: Diarrhoea
     Dosage: 5 MICROGRAM, QD
     Route: 048
     Dates: start: 20220503

REACTIONS (1)
  - Cardiac arrest [Fatal]

NARRATIVE: CASE EVENT DATE: 20230908
